FAERS Safety Report 16544430 (Version 4)
Quarter: 2019Q4

REPORT INFORMATION
  Report Type: Spontaneous
  Country: PR (occurrence: PR)
  Receive Date: 20190709
  Receipt Date: 20191216
  Transmission Date: 20200122
  Serious: Yes (Other)
  Sender: FDA-Public Use
  Company Number: PR-PFIZER INC-2019289831

PATIENT
  Age: 61 Year
  Sex: Female
  Weight: 58.96 kg

DRUGS (3)
  1. IBRANCE [Suspect]
     Active Substance: PALBOCICLIB
     Dosage: 125 MG, CYCLIC (21DAYS DAILY 7 DAYS OFF )
     Route: 048
     Dates: end: 2019
  2. IBRANCE [Suspect]
     Active Substance: PALBOCICLIB
     Indication: BREAST CANCER FEMALE
     Dosage: 125 MG, CYCLIC (21DAYS DAILY 7 DAYS OFF )
     Route: 048
     Dates: start: 20190620
  3. IBRANCE [Suspect]
     Active Substance: PALBOCICLIB
     Dosage: 125 MG, CYCLIC (21DAYS DAILY 7 DAYS OFF )
     Route: 048

REACTIONS (5)
  - Pelvic pain [Unknown]
  - Pruritus [Unknown]
  - Dysmenorrhoea [Unknown]
  - Dry skin [Unknown]
  - Immune system disorder [Unknown]

NARRATIVE: CASE EVENT DATE: 2019
